FAERS Safety Report 19410962 (Version 3)
Quarter: 2025Q2

REPORT INFORMATION
  Report Type: Spontaneous
  Country: FI (occurrence: FI)
  Receive Date: 20210614
  Receipt Date: 20250520
  Transmission Date: 20250716
  Serious: Yes (Other)
  Sender: MYLAN
  Company Number: FI-HAMELN RDS AS-HAM20201200063

PATIENT
  Sex: Male

DRUGS (24)
  1. ROCURONIUM [Suspect]
     Active Substance: ROCURONIUM BROMIDE
     Indication: Muscle relaxant therapy
  2. ROCURONIUM [Suspect]
     Active Substance: ROCURONIUM BROMIDE
     Route: 042
  3. ROCURONIUM [Suspect]
     Active Substance: ROCURONIUM BROMIDE
     Route: 042
  4. ROCURONIUM [Suspect]
     Active Substance: ROCURONIUM BROMIDE
  5. DEXAMETHASONE [Suspect]
     Active Substance: DEXAMETHASONE
     Indication: Procedural nausea
  6. DEXAMETHASONE [Suspect]
     Active Substance: DEXAMETHASONE
     Route: 042
  7. DEXAMETHASONE [Suspect]
     Active Substance: DEXAMETHASONE
     Route: 042
  8. DEXAMETHASONE [Suspect]
     Active Substance: DEXAMETHASONE
  9. MIDAZOLAM [Suspect]
     Active Substance: MIDAZOLAM
     Indication: Sedation
  10. MIDAZOLAM [Suspect]
     Active Substance: MIDAZOLAM
     Route: 042
  11. MIDAZOLAM [Suspect]
     Active Substance: MIDAZOLAM
     Route: 042
  12. MIDAZOLAM [Suspect]
     Active Substance: MIDAZOLAM
  13. EPHEDRINE [Suspect]
     Active Substance: EPHEDRINE
     Indication: Sympathomimetic effect
  14. EPHEDRINE [Suspect]
     Active Substance: EPHEDRINE
     Route: 042
  15. EPHEDRINE [Suspect]
     Active Substance: EPHEDRINE
     Route: 042
  16. EPHEDRINE [Suspect]
     Active Substance: EPHEDRINE
  17. LIDOCAINE HYDROCHLORIDE [Suspect]
     Active Substance: LIDOCAINE HYDROCHLORIDE
     Indication: Anaesthesia
  18. LIDOCAINE HYDROCHLORIDE [Suspect]
     Active Substance: LIDOCAINE HYDROCHLORIDE
     Route: 042
  19. LIDOCAINE HYDROCHLORIDE [Suspect]
     Active Substance: LIDOCAINE HYDROCHLORIDE
     Route: 042
  20. LIDOCAINE HYDROCHLORIDE [Suspect]
     Active Substance: LIDOCAINE HYDROCHLORIDE
  21. PROPOFOL [Suspect]
     Active Substance: PROPOFOL
     Indication: Anaesthesia
  22. PROPOFOL [Suspect]
     Active Substance: PROPOFOL
     Route: 042
  23. PROPOFOL [Suspect]
     Active Substance: PROPOFOL
     Route: 042
  24. PROPOFOL [Suspect]
     Active Substance: PROPOFOL

REACTIONS (2)
  - Bradycardia [Unknown]
  - Rapid eye movements sleep abnormal [Unknown]
